FAERS Safety Report 21540005 (Version 6)
Quarter: 2024Q2

REPORT INFORMATION
  Report Type: Other
  Country: CA (occurrence: None)
  Receive Date: 20221102
  Receipt Date: 20240513
  Transmission Date: 20240715
  Serious: Yes (Other)
  Sender: FDA-Public Use
  Company Number: CA-ROCHE-3208017

PATIENT
  Age: 52 Year
  Sex: Male
  Weight: 65 kg

DRUGS (2)
  1. OCREVUS [Suspect]
     Active Substance: OCRELIZUMAB
     Indication: Primary progressive multiple sclerosis
     Dosage: 300 MG AT DAY 0 AND 14, THEN 600 MG EVERY 6 MONTH
     Route: 042
     Dates: start: 20200915
  2. OCREVUS [Suspect]
     Active Substance: OCRELIZUMAB
     Route: 042
     Dates: start: 20240501

REACTIONS (7)
  - Multiple sclerosis [Unknown]
  - Infusion related reaction [Recovered/Resolved]
  - Drug ineffective [Unknown]
  - Vascular access site extravasation [Recovered/Resolved]
  - Vascular access site swelling [Unknown]
  - Gait disturbance [Unknown]
  - Poor venous access [Recovered/Resolved]

NARRATIVE: CASE EVENT DATE: 20221026
